FAERS Safety Report 23450524 (Version 1)
Quarter: 2024Q1

REPORT INFORMATION
  Report Type: Spontaneous
  Country: US (occurrence: US)
  Receive Date: 20240129
  Receipt Date: 20240129
  Transmission Date: 20240410
  Serious: No
  Sender: FDA-Public Use
  Company Number: US-GSK-US2024AMR009555

PATIENT
  Sex: Female

DRUGS (3)
  1. BENLYSTA [Suspect]
     Active Substance: BELIMUMAB
     Indication: Rheumatoid arthritis
     Dosage: 200 MG, WE
     Route: 058
  2. BENLYSTA [Suspect]
     Active Substance: BELIMUMAB
     Indication: Rheumatoid factor
  3. BENLYSTA [Suspect]
     Active Substance: BELIMUMAB
     Indication: Behcet^s syndrome

REACTIONS (1)
  - Product use in unapproved indication [Unknown]
